FAERS Safety Report 17909195 (Version 4)
Quarter: 2020Q4

REPORT INFORMATION
  Report Type: Report from Study
  Country: US (occurrence: US)
  Receive Date: 20200617
  Receipt Date: 20201223
  Transmission Date: 20210113
  Serious: Yes (Other)
  Sender: FDA-Public Use
  Company Number: NVSC2020US169486

PATIENT
  Sex: Male

DRUGS (1)
  1. ENTRESTO [Suspect]
     Active Substance: SACUBITRIL\VALSARTAN
     Indication: CARDIAC FAILURE
     Dosage: 100 MG, BID (49/51 MG)
     Route: 048

REACTIONS (8)
  - Muscular weakness [Unknown]
  - COVID-19 [Unknown]
  - Dyspnoea [Unknown]
  - Asthenia [Unknown]
  - Infection [Unknown]
  - Musculoskeletal discomfort [Unknown]
  - Thrombosis [Unknown]
  - Ejection fraction decreased [Unknown]
